FAERS Safety Report 14219693 (Version 2)
Quarter: 2018Q1

REPORT INFORMATION
  Report Type: Spontaneous
  Country: DE (occurrence: DE)
  Receive Date: 20171123
  Receipt Date: 20180112
  Transmission Date: 20180508
  Serious: Yes (Hospitalization)
  Sender: FDA-Public Use
  Company Number: PHHY2017DE170747

PATIENT
  Sex: Male
  Weight: 85 kg

DRUGS (6)
  1. ADVAGRAF [Concomitant]
     Active Substance: TACROLIMUS
     Indication: LIVER TRANSPLANT
     Dosage: 2 MG, QD
     Route: 048
     Dates: start: 201212
  2. TACROLIMUS. [Concomitant]
     Active Substance: TACROLIMUS
     Indication: IMMUNOSUPPRESSION
  3. TACROLIMUS. [Concomitant]
     Active Substance: TACROLIMUS
     Indication: LIVER TRANSPLANT
     Dosage: UNK
     Route: 065
     Dates: end: 201606
  4. EVEROLIMUS. [Suspect]
     Active Substance: EVEROLIMUS
     Indication: LIVER TRANSPLANT
     Dosage: 4 MG, QD
     Route: 048
     Dates: start: 201601
  5. EVEROLIMUS. [Suspect]
     Active Substance: EVEROLIMUS
     Indication: IMMUNOSUPPRESSION
  6. ADVAGRAF [Concomitant]
     Active Substance: TACROLIMUS
     Indication: IMMUNOSUPPRESSION

REACTIONS (4)
  - Pyrexia [Recovered/Resolved]
  - Arthritis reactive [Recovered/Resolved]
  - Arthralgia [Recovered/Resolved]
  - Cytomegalovirus infection [Recovering/Resolving]

NARRATIVE: CASE EVENT DATE: 201606
